FAERS Safety Report 9414735 (Version 1)
Quarter: 2013Q3

REPORT INFORMATION
  Report Type: Spontaneous
  Country: US (occurrence: US)
  Receive Date: 20130723
  Receipt Date: 20130723
  Transmission Date: 20140515
  Serious: Yes (Hospitalization, Other)
  Sender: FDA-Public Use
  Company Number: US-MYLANLABS-2013S1015386

PATIENT
  Age: 56 Year
  Sex: Male
  Weight: 104.33 kg

DRUGS (2)
  1. FENTANYL TRANSDERMAL SYSTEM [Suspect]
     Indication: PAIN
     Dosage: TWO PATCHES EVERY 48HR
     Route: 062
     Dates: start: 20130626, end: 20130626
  2. OXYCODONE [Concomitant]
     Indication: BREAKTHROUGH PAIN
     Dosage: Q 4-6 HOURS PRN
     Route: 048

REACTIONS (5)
  - Overdose [Recovered/Resolved]
  - Respiratory arrest [Recovered/Resolved]
  - Dyspnoea [Not Recovered/Not Resolved]
  - Chronic obstructive pulmonary disease [Not Recovered/Not Resolved]
  - Brain injury [Not Recovered/Not Resolved]
